FAERS Safety Report 5284206-8 (Version None)
Quarter: 2007Q1

REPORT INFORMATION
  Report Type: 
  Country: None (occurrence: None)
  Receive Date: 20070330
  Receipt Date: 20070330
  Transmission Date: 20070707
  Serious: Yes (Death, Other)
  Sender: FDA-Public Use
  Company Number: None

PATIENT
  Age: 71 Year
  Sex: Female

DRUGS (20)
  1. NOVOSEVEN [Suspect]
     Indication: FACTOR VIII INHIBITION
     Dosage: 7,200 MICROGRAMS  EVERY FOUR HOURS  IV
     Route: 042
     Dates: start: 20070310, end: 20070313
  2. DIAZEPAM [Concomitant]
  3. EZETIMIBE [Concomitant]
  4. FLUOXETINE [Concomitant]
  5. METOPROLOL SUCCINATE [Concomitant]
  6. TRAMADOL HCL [Concomitant]
  7. HYDRALAZINE HCL [Concomitant]
  8. INDAPAMIDE [Concomitant]
  9. DOXYCYCLINE [Concomitant]
  10. ASCORBIC ACID [Concomitant]
  11. FAMOTIDINE [Concomitant]
  12. FERROUS SULFATE [Concomitant]
  13. FOLIC ACID [Concomitant]
  14. MULTI-VITAMIN [Concomitant]
  15. PREDNISONE TAB [Concomitant]
  16. THIAMINE [Concomitant]
  17. VITAMIN E [Concomitant]
  18. RITUXIMAB [Concomitant]
  19. FACTOR VIIA (NOVO SEVEN) [Concomitant]
  20. FACTOR VIII [Concomitant]

REACTIONS (17)
  - BALANCE DISORDER [None]
  - BLOOD PRESSURE SYSTOLIC DECREASED [None]
  - BLOOD PRESSURE SYSTOLIC INCREASED [None]
  - CARDIAC ARREST [None]
  - ELECTROCARDIOGRAM ST SEGMENT ELEVATION [None]
  - FALL [None]
  - GENERAL PHYSICAL HEALTH DETERIORATION [None]
  - HAEMATOCRIT DECREASED [None]
  - HEAD INJURY [None]
  - MYOCARDIAL INFARCTION [None]
  - NO THERAPEUTIC RESPONSE [None]
  - PRESYNCOPE [None]
  - PULMONARY EMBOLISM [None]
  - PULMONARY HAEMORRHAGE [None]
  - PULMONARY HYPERTENSION [None]
  - RESPIRATORY DISTRESS [None]
  - RESPIRATORY FAILURE [None]
